FAERS Safety Report 19920897 (Version 5)
Quarter: 2022Q2

REPORT INFORMATION
  Report Type: Report from Study
  Country: FR (occurrence: FR)
  Receive Date: 20211005
  Receipt Date: 20220505
  Transmission Date: 20220721
  Serious: Yes (Life-Threatening, Other)
  Sender: FDA-Public Use
  Company Number: FR-PFIZER INC-202101286629

PATIENT
  Sex: Male
  Weight: 68 kg

DRUGS (7)
  1. AVIBACTAM SODIUM\CEFTAZIDIME [Suspect]
     Active Substance: AVIBACTAM SODIUM\CEFTAZIDIME
     Indication: Product used for unknown indication
     Dosage: 1 G, Q4HR
     Dates: start: 20190620, end: 20190627
  2. AVIBACTAM SODIUM\CEFTAZIDIME [Suspect]
     Active Substance: AVIBACTAM SODIUM\CEFTAZIDIME
     Dosage: 1 G, Q4HR
     Dates: start: 20190617, end: 20190617
  3. PIPERACILLIN SODIUM\TAZOBACTAM SODIUM [Concomitant]
     Active Substance: PIPERACILLIN SODIUM\TAZOBACTAM SODIUM
     Indication: Septic shock
     Dosage: UNK
     Route: 042
     Dates: start: 20190606, end: 20190612
  4. LINEZOLID [Concomitant]
     Active Substance: LINEZOLID
     Indication: Septic shock
     Dosage: UNK
     Route: 042
     Dates: start: 20190606, end: 20190612
  5. METRONIDAZOLE [Concomitant]
     Active Substance: METRONIDAZOLE
     Indication: Septic shock
     Dosage: UNK
     Route: 042
     Dates: start: 20190606, end: 20190617
  6. AZTREONAM [Concomitant]
     Active Substance: AZTREONAM
     Indication: Septic shock
     Dosage: UNK
     Route: 042
     Dates: start: 20190617, end: 20190629
  7. AUGMENTIN [Concomitant]
     Active Substance: AMOXICILLIN\CLAVULANATE POTASSIUM
     Indication: Septic shock
     Dosage: UNK
     Route: 042
     Dates: start: 20190621

REACTIONS (8)
  - Cardiac arrest [Recovered/Resolved]
  - Sinoatrial block [Unknown]
  - Cough [Unknown]
  - Inflammation [Unknown]
  - Condition aggravated [Unknown]
  - Anxiety [Unknown]
  - Negative thoughts [Unknown]
  - Hypervolaemia [Recovered/Resolved]

NARRATIVE: CASE EVENT DATE: 20190619
